FAERS Safety Report 10367587 (Version 1)
Quarter: 2014Q3

REPORT INFORMATION
  Report Type: Spontaneous
  Country: US (occurrence: None)
  Receive Date: 20140806
  Receipt Date: 20140806
  Transmission Date: 20150326
  Serious: Yes (Hospitalization)
  Sender: FDA-Public Use
  Company Number: None

PATIENT
  Age: 23 Year
  Sex: Male

DRUGS (1)
  1. CLONAZAPINE, USP ODT (CLOZAPINE, USP) OCT) (ORAL DISINTEGRATING TABLET) [Suspect]
     Active Substance: CLOZAPINE
     Indication: MENTAL DISORDER

REACTIONS (2)
  - Delusion [None]
  - Aggression [None]
